FAERS Safety Report 17427119 (Version 1)
Quarter: 2020Q1

REPORT INFORMATION
  Report Type: Spontaneous
  Country: AR (occurrence: AR)
  Receive Date: 20200217
  Receipt Date: 20200217
  Transmission Date: 20200409
  Serious: Yes (Hospitalization, Other)
  Sender: FDA-Public Use
  Company Number: AR-BAYER-2020-009839

PATIENT
  Age: 40 Year
  Sex: Female

DRUGS (1)
  1. MIRENA [Suspect]
     Active Substance: LEVONORGESTREL
     Indication: MENSTRUAL CYCLE MANAGEMENT
     Dosage: 20 MCG/24HR, CONT
     Route: 015

REACTIONS (8)
  - Abortion spontaneous [None]
  - Multiple pregnancy [None]
  - Pregnancy with contraceptive device [None]
  - Coagulopathy [None]
  - Product use in unapproved indication [None]
  - Off label use of device [None]
  - Drug ineffective [None]
  - Haemolytic anaemia [None]
